FAERS Safety Report 5148677-X (Version None)
Quarter: 2006Q4

REPORT INFORMATION
  Report Type: 
  Country: None (occurrence: None)
  Receive Date: 20061103
  Receipt Date: 20061025
  Transmission Date: 20070319
  Serious: Yes (Other)
  Sender: FDA-Public Use
  Company Number: FRWYE196311OCT06

PATIENT
  Age: 15 Year
  Sex: Female

DRUGS (1)
  1. ETHINYL ESTRADIOL AND LEVONORGESTREL [Suspect]
     Indication: OVARIAN DISORDER
     Dosage: 1 TABLET 1X PER 1 DAY
     Route: 048
     Dates: start: 20061009, end: 20061009

REACTIONS (3)
  - CONDITION AGGRAVATED [None]
  - HEREDITARY ANGIOEDEMA [None]
  - URTICARIA [None]
